FAERS Safety Report 23888483 (Version 2)
Quarter: 2024Q3

REPORT INFORMATION
  Report Type: Spontaneous
  Country: FR (occurrence: FR)
  Receive Date: 20240523
  Receipt Date: 20240723
  Transmission Date: 20241016
  Serious: Yes (Other)
  Sender: NOVARTIS
  Company Number: FR-ITM MEDICAL ISOTOPES GMBH-ITMFR2024000176

PATIENT
  Sex: Male

DRUGS (2)
  1. LUTETIUM CHLORIDE LU-177 [Suspect]
     Active Substance: LUTETIUM CHLORIDE LU-177
     Indication: Radioisotope therapy
     Dosage: UNK GBQ, CYCLIC (CYCLE #1, AT DOSE OF 6-7.6GBQ, EVERY 6?8 WK)
     Route: 065
  2. LUTETIUM LU-177 VIPIVOTIDE TETRAXETAN [Suspect]
     Active Substance: LUTETIUM LU-177 VIPIVOTIDE TETRAXETAN
     Indication: Hormone-refractory prostate cancer
     Dosage: UNK GBQ, CYCLIC (CYCLE #1, AT DOSE OF 6-7.6GBQ, EVERY 6?8 WK)
     Route: 065

REACTIONS (1)
  - Pain [Unknown]
